FAERS Safety Report 5392881-2 (Version None)
Quarter: 2007Q3

REPORT INFORMATION
  Report Type: 
  Country: None (occurrence: None)
  Receive Date: 20070721
  Receipt Date: 20070710
  Transmission Date: 20080115
  Serious: Yes (Other)
  Sender: FDA-Public Use
  Company Number: US-PFIZER INC-2007057817

PATIENT
  Sex: Male
  Weight: 80.7 kg

DRUGS (5)
  1. CHANTIX [Suspect]
  2. DIDANOSINE [Interacting]
     Indication: HIV INFECTION
  3. REYATAZ [Concomitant]
  4. NORVIR [Concomitant]
  5. TRUVADA [Concomitant]

REACTIONS (2)
  - DRUG INTERACTION [None]
  - PANCREATITIS [None]
